FAERS Safety Report 23041667 (Version 2)
Quarter: 2023Q4

REPORT INFORMATION
  Report Type: Spontaneous
  Country: DE (occurrence: GB)
  Receive Date: 20231007
  Receipt Date: 20231220
  Transmission Date: 20240110
  Serious: Yes (Death, Other)
  Sender: FDA-Public Use
  Company Number: GB-AMGEN-GBRSP2023174187

PATIENT

DRUGS (6)
  1. KYPROLIS [Suspect]
     Active Substance: CARFILZOMIB
     Indication: Plasma cell myeloma refractory
     Dosage: 20 MILLILITRE PER SQUARE METRE (DAY 1, CYCLE 1)
     Route: 042
  2. KYPROLIS [Suspect]
     Active Substance: CARFILZOMIB
     Dosage: 56 MILLILITRE PER SQUARE METRE (DAYS 8 AND 15 OF CYCLE 1)
     Route: 042
  3. MEZIGDOMIDE [Suspect]
     Active Substance: MEZIGDOMIDE
     Indication: Plasma cell myeloma refractory
     Dosage: 0.3 MILLIGRAM (0.3, 0.6, OR 1.0 MG ON DAYS 1 TO 21)
     Route: 065
  4. MEZIGDOMIDE [Suspect]
     Active Substance: MEZIGDOMIDE
     Dosage: 0.6 MILLIGRAM (0.3, 0.6, OR 1.0 MG ON DAYS 1 TO 21)
     Route: 065
  5. MEZIGDOMIDE [Suspect]
     Active Substance: MEZIGDOMIDE
     Dosage: 1 MILLIGRAM (0.3, 0.6, OR 1.0 MG ON DAYS 1 TO 21)
     Route: 065
  6. DEXAMETHASONE [Suspect]
     Active Substance: DEXAMETHASONE
     Indication: Plasma cell myeloma refractory
     Dosage: 40 MILLIGRAM (DAYS 1, 8, 15, AND 22) ORAL OR IV
     Route: 065

REACTIONS (13)
  - Death [Fatal]
  - Thrombocytopenia [Unknown]
  - Neutropenia [Unknown]
  - Pneumonia [Unknown]
  - Plasma cell myeloma [Unknown]
  - Plasma cell myeloma refractory [Unknown]
  - Adverse event [Unknown]
  - Blood disorder [Unknown]
  - Anaemia [Unknown]
  - Infection [Unknown]
  - Upper respiratory tract infection [Unknown]
  - COVID-19 [Unknown]
  - Off label use [Unknown]
